FAERS Safety Report 11969791 (Version 2)
Quarter: 2016Q1

REPORT INFORMATION
  Report Type: Report from Study
  Country: US (occurrence: US)
  Receive Date: 20160128
  Receipt Date: 20160314
  Transmission Date: 20160526
  Serious: Yes (Death, Other)
  Sender: FDA-Public Use
  Company Number: US-SA-2016SA014626

PATIENT
  Age: 88 Year
  Sex: Male
  Weight: 72.12 kg

DRUGS (9)
  1. CEREZYME [Suspect]
     Active Substance: IMIGLUCERASE
     Indication: GAUCHER^S DISEASE TYPE I
     Route: 041
     Dates: start: 20091002
  2. CEREZYME [Suspect]
     Active Substance: IMIGLUCERASE
     Indication: GAUCHER^S DISEASE TYPE I
     Route: 041
     Dates: start: 2011, end: 201401
  3. ALLOPURINOL. [Concomitant]
     Active Substance: ALLOPURINOL
     Route: 048
  4. AMLODIPINE [Concomitant]
     Active Substance: AMLODIPINE BESYLATE
     Route: 048
  5. ATENOLOL. [Concomitant]
     Active Substance: ATENOLOL
     Route: 048
  6. POTASSIUM CHLORIDE. [Concomitant]
     Active Substance: POTASSIUM CHLORIDE
     Route: 048
     Dates: start: 20141204
  7. FOLIC ACID/PYRIDOXINE [Concomitant]
     Route: 048
  8. CEREZYME [Suspect]
     Active Substance: IMIGLUCERASE
     Indication: GAUCHER^S DISEASE TYPE I
     Route: 041
     Dates: start: 201401, end: 20151217
  9. FUROSEMIDE. [Concomitant]
     Active Substance: FUROSEMIDE
     Route: 048

REACTIONS (9)
  - Aortic aneurysm [Fatal]
  - Abdominal pain lower [Fatal]
  - Hypotension [Fatal]
  - Wheezing [Unknown]
  - Bronchitis [Unknown]
  - Pulse abnormal [Fatal]
  - Renal failure [Unknown]
  - Blood pressure abnormal [Unknown]
  - Loss of consciousness [Fatal]

NARRATIVE: CASE EVENT DATE: 20141230
